FAERS Safety Report 20631366 (Version 1)
Quarter: 2022Q1

REPORT INFORMATION
  Report Type: Spontaneous
  Country: IN (occurrence: IN)
  Receive Date: 20220324
  Receipt Date: 20220324
  Transmission Date: 20220423
  Serious: Yes (Other)
  Sender: FDA-Public Use
  Company Number: IN-ASTELLAS-2022US010739

PATIENT
  Age: 54 Year
  Sex: Male

DRUGS (2)
  1. ISAVUCONAZOLE [Suspect]
     Active Substance: ISAVUCONAZOLE
     Indication: Rhinocerebral mucormycosis
     Route: 048
     Dates: start: 20220223, end: 20220224
  2. ISAVUCONAZOLE [Suspect]
     Active Substance: ISAVUCONAZOLE
     Route: 048
     Dates: start: 20220225

REACTIONS (3)
  - Upper motor neurone lesion [Unknown]
  - Eyelid ptosis [Unknown]
  - Breath odour [Unknown]
